FAERS Safety Report 5410467-8 (Version None)
Quarter: 2007Q3

REPORT INFORMATION
  Report Type: 
  Country: None (occurrence: None)
  Receive Date: 20070810
  Receipt Date: 20070102
  Transmission Date: 20080115
  Serious: No
  Sender: FDA-Public Use
  Company Number: A0633245A

PATIENT
  Age: 43 Year
  Sex: Male

DRUGS (2)
  1. PAXIL [Suspect]
     Indication: DEPRESSION
     Dosage: 40MG PER DAY
     Route: 048
     Dates: start: 20061209
  2. NO CONCURRENT MEDICATION [Concomitant]

REACTIONS (2)
  - BODY TEMPERATURE INCREASED [None]
  - LOSS OF LIBIDO [None]
